FAERS Safety Report 22172933 (Version 1)
Quarter: 2023Q2

REPORT INFORMATION
  Report Type: Spontaneous
  Country: CA (occurrence: CA)
  Receive Date: 20230404
  Receipt Date: 20230404
  Transmission Date: 20230721
  Serious: Yes (Death, Hospitalization)
  Sender: FDA-Public Use
  Company Number: CA-002147023-NVSC2023CA041067

PATIENT

DRUGS (1)
  1. LUTATHERA [Suspect]
     Active Substance: LUTETIUM OXODOTREOTIDE LU-177
     Indication: Product used for unknown indication
     Dosage: 7.4 GBQ (200 MCI), OTHER (ONE DOSE EVERY 8 WEEKS UP TO 4 DOSES)
     Route: 042
     Dates: start: 20211021, end: 20220309

REACTIONS (2)
  - Death [Fatal]
  - Ill-defined disorder [Unknown]
